FAERS Safety Report 13555149 (Version 1)
Quarter: 2017Q2

REPORT INFORMATION
  Report Type: Spontaneous
  Country: US (occurrence: US)
  Receive Date: 20170517
  Receipt Date: 20170517
  Transmission Date: 20170830
  Serious: No
  Sender: FDA-Public Use
  Company Number: US-SHIRE-US201710572

PATIENT
  Age: 25 Year
  Sex: Female
  Weight: 95.24 kg

DRUGS (2)
  1. VYVANSE [Suspect]
     Active Substance: LISDEXAMFETAMINE DIMESYLATE
     Indication: ATTENTION DEFICIT/HYPERACTIVITY DISORDER
     Dosage: 30 MG, 1X/DAY:QD
     Route: 048
     Dates: start: 201612, end: 20170429
  2. VALIUM [Concomitant]
     Active Substance: DIAZEPAM
     Indication: PRODUCT USED FOR UNKNOWN INDICATION
     Dosage: 2 MG, 1X/DAY:QD
     Route: 048
     Dates: start: 201703

REACTIONS (9)
  - Therapeutic response shortened [Recovered/Resolved]
  - Memory impairment [Unknown]
  - Mood altered [Unknown]
  - Inappropriate schedule of drug administration [Recovered/Resolved]
  - Frustration tolerance decreased [Unknown]
  - Aggression [Unknown]
  - Therapeutic response unexpected [Unknown]
  - Mental disorder [Unknown]
  - Drug dose omission [Recovered/Resolved]

NARRATIVE: CASE EVENT DATE: 201612
